FAERS Safety Report 19004152 (Version 2)
Quarter: 2021Q1

REPORT INFORMATION
  Report Type: Report from Study
  Country: DE (occurrence: DE)
  Receive Date: 20210312
  Receipt Date: 20210331
  Transmission Date: 20210420
  Serious: Yes (Death, Hospitalization)
  Sender: FDA-Public Use
  Company Number: DE-CELGENEUS-DEU-20210206002

PATIENT
  Age: 68 Year
  Sex: Male
  Weight: 75 kg

DRUGS (6)
  1. LENALIDOMIDE [Suspect]
     Active Substance: LENALIDOMIDE
     Indication: DUCTAL ADENOCARCINOMA OF PANCREAS
     Dosage: 10 MILLIGRAM
     Route: 048
     Dates: start: 20201216, end: 20201230
  2. ABRAXANE [Suspect]
     Active Substance: PACLITAXEL
     Dosage: 260 MILLIGRAM
     Route: 041
     Dates: start: 20200911, end: 20201125
  3. DURVALUMAB. [Suspect]
     Active Substance: DURVALUMAB
     Indication: DUCTAL ADENOCARCINOMA OF PANCREAS
     Dosage: 1500 MILLIGRAM
     Route: 041
     Dates: start: 20201216, end: 20201216
  4. ABRAXANE [Suspect]
     Active Substance: PACLITAXEL
     Indication: DUCTAL ADENOCARCINOMA OF PANCREAS
     Dosage: 250 MILLIGRAM
     Route: 041
     Dates: start: 20200106, end: 20200106
  5. GEMCITABINE. [Suspect]
     Active Substance: GEMCITABINE
     Indication: DUCTAL ADENOCARCINOMA OF PANCREAS
     Dosage: 2 GRAM
     Route: 041
     Dates: start: 20200106, end: 20200106
  6. GEMCITABINE. [Suspect]
     Active Substance: GEMCITABINE
     Dosage: 260 MILLIGRAM
     Route: 041
     Dates: start: 20200911, end: 20201125

REACTIONS (2)
  - Acute kidney injury [Fatal]
  - Nausea [Not Recovered/Not Resolved]

NARRATIVE: CASE EVENT DATE: 20210217
